FAERS Safety Report 4567266-9 (Version None)
Quarter: 2005Q1

REPORT INFORMATION
  Report Type: 
  Country: None (occurrence: None)
  Receive Date: 20050127
  Receipt Date: 20050114
  Transmission Date: 20050727
  Serious: Yes (Other)
  Sender: FDA-Public Use
  Company Number: 2005015050

PATIENT
  Age: 29 Year
  Sex: Female

DRUGS (2)
  1. ZIPRASIDONE (CAPS) (ZIPRASIDONE) [Suspect]
     Indication: PSYCHOTIC DISORDER
     Dosage: 120 MG, ORAL
     Route: 048
  2. QUETIAPINE (QUETIAPINE) [Suspect]
     Indication: PSYCHOTIC DISORDER
     Dosage: 600 MG, ORAL
     Route: 048

REACTIONS (4)
  - ANAEMIA MACROCYTIC [None]
  - FULL BLOOD COUNT DECREASED [None]
  - MACROCYTOSIS [None]
  - MYELODYSPLASTIC SYNDROME [None]
